FAERS Safety Report 9785865 (Version 1)
Quarter: 2013Q4

REPORT INFORMATION
  Report Type: Spontaneous
  Country: JP (occurrence: JP)
  Receive Date: 20131227
  Receipt Date: 20131227
  Transmission Date: 20140711
  Serious: Yes (Hospitalization)
  Sender: FDA-Public Use
  Company Number: JP-EISAI INC-E2090-03050-SPO-JP

PATIENT
  Age: 70 Year
  Sex: Female

DRUGS (2)
  1. EXCEGRAN [Suspect]
     Indication: EPILEPSY
     Dosage: 200 MG
     Route: 048
  2. EXCEGRAN [Suspect]
     Dosage: 100 MG
     Route: 048

REACTIONS (1)
  - Renal impairment [Unknown]
